FAERS Safety Report 7913532-6 (Version None)
Quarter: 2011Q4

REPORT INFORMATION
  Report Type: 
  Country: None (occurrence: None)
  Receive Date: 20111110
  Receipt Date: 20111028
  Transmission Date: 20120403
  Serious: Yes (Death, Life-Threatening, Hospitalization, Other)
  Sender: FDA-Public Use
  Company Number: 2011MA015711

PATIENT
  Age: 74 Year
  Sex: Male
  Weight: 140.6151 kg

DRUGS (20)
  1. DIGOXIN [Suspect]
     Indication: ISCHAEMIC CARDIOMYOPATHY
     Dosage: 0.125 MG, QD
     Dates: start: 20040101, end: 20070329
  2. DIGOXIN [Suspect]
     Indication: ATRIAL FIBRILLATION
     Dosage: 0.125 MG, QD
     Dates: start: 20040101, end: 20070329
  3. CARVEDILOL [Concomitant]
  4. FLONASE [Concomitant]
  5. SPIRONOLACTONE [Concomitant]
  6. SIMVASTATIN [Concomitant]
  7. ALPRAZOLAM [Concomitant]
  8. TAMSULOSIN HCL [Concomitant]
  9. AMIODARONE HCL [Concomitant]
  10. PROTONIX [Concomitant]
  11. TORSEMIDE [Concomitant]
  12. COZAAR [Concomitant]
  13. ANTIBIOTIC [Concomitant]
  14. ASPIRIN [Concomitant]
  15. QUININE SULFATE [Concomitant]
  16. PHENAZOPYRIDINE HCL TAB [Concomitant]
  17. VICODIN [Concomitant]
  18. LASIX [Concomitant]
  19. COMBIVENT [Concomitant]
  20. NESIRITIDE [Concomitant]

REACTIONS (30)
  - PRODUCT QUALITY ISSUE [None]
  - AZOTAEMIA [None]
  - ISCHAEMIC CARDIOMYOPATHY [None]
  - ASTHENIA [None]
  - CONFUSIONAL STATE [None]
  - NASOPHARYNGITIS [None]
  - MITRAL VALVE INCOMPETENCE [None]
  - MENTAL DISORDER [None]
  - DIZZINESS [None]
  - DYSGEUSIA [None]
  - WEIGHT DECREASED [None]
  - RIB FRACTURE [None]
  - MULTIPLE INJURIES [None]
  - MYOCARDIAL INFARCTION [None]
  - ANURIA [None]
  - DECREASED APPETITE [None]
  - TREATMENT FAILURE [None]
  - OVERDOSE [None]
  - SLEEP APNOEA SYNDROME [None]
  - RENAL FAILURE ACUTE [None]
  - PNEUMONIA [None]
  - PAIN [None]
  - EMOTIONAL DISORDER [None]
  - WEIGHT INCREASED [None]
  - TOXICITY TO VARIOUS AGENTS [None]
  - ECONOMIC PROBLEM [None]
  - FALL [None]
  - FLUID OVERLOAD [None]
  - DYSPNOEA [None]
  - DIARRHOEA [None]
